FAERS Safety Report 5034055-0 (Version None)
Quarter: 2006Q2

REPORT INFORMATION
  Report Type: 
  Country: None (occurrence: None)
  Receive Date: 20060626
  Receipt Date: 20050325
  Transmission Date: 20061013
  Serious: Yes (Hospitalization)
  Sender: FDA-Public Use
  Company Number: 200511100FR

PATIENT
  Age: 12 Year
  Sex: Female

DRUGS (5)
  1. RIFADIN [Suspect]
     Route: 042
     Dates: start: 20050126, end: 20050210
  2. AMIKLIN [Suspect]
     Route: 042
     Dates: start: 20050204, end: 20050210
  3. TAZOCILLINE [Suspect]
     Route: 042
     Dates: start: 20050204, end: 20050210
  4. TRIFLUCAN [Suspect]
     Route: 042
     Dates: start: 20050126, end: 20050217
  5. VANCOCINE [Suspect]
     Route: 042
     Dates: start: 20050126, end: 20050217

REACTIONS (10)
  - ANGIONEUROTIC OEDEMA [None]
  - CHEILITIS [None]
  - DRUG RASH WITH EOSINOPHILIA AND SYSTEMIC SYMPTOMS [None]
  - EOSINOPHILIA [None]
  - HEPATOCELLULAR DAMAGE [None]
  - LYMPHADENOPATHY [None]
  - LYMPHOCYTIC INFILTRATION [None]
  - NEUTROPENIA [None]
  - PURPURA [None]
  - URTICARIA GENERALISED [None]
